FAERS Safety Report 18199107 (Version 3)
Quarter: 2020Q3

REPORT INFORMATION
  Report Type: Spontaneous
  Country: US (occurrence: US)
  Receive Date: 20200826
  Receipt Date: 20200921
  Transmission Date: 20201103
  Serious: Yes (Other)
  Sender: FDA-Public Use
  Company Number: US-MALLINCKRODT-T201906480

PATIENT
  Age: 59 Year
  Sex: Female
  Weight: 54 kg

DRUGS (3)
  1. H.P. ACTHAR [Suspect]
     Active Substance: CORTICOTROPIN
     Dosage: 80 UNITS/1ML, EVERY 3 DAYS
     Route: 058
     Dates: start: 20190523, end: 20200424
  2. H.P. ACTHAR [Suspect]
     Active Substance: CORTICOTROPIN
     Indication: KERATITIS
     Dosage: 80 UNITS, EVERY 3 DAYS
     Route: 058
     Dates: start: 20190517, end: 201905
  3. H.P. ACTHAR [Suspect]
     Active Substance: CORTICOTROPIN
     Dosage: 80 UNITS EVERY 72 HOURS
     Route: 058
     Dates: start: 2020, end: 20200807

REACTIONS (18)
  - Appetite disorder [Unknown]
  - Product dose omission issue [Unknown]
  - Pruritus [Not Recovered/Not Resolved]
  - Rash macular [Not Recovered/Not Resolved]
  - Depression [Unknown]
  - Erythema [Not Recovered/Not Resolved]
  - Glucose tolerance impaired [Not Recovered/Not Resolved]
  - Injection site bruising [Unknown]
  - Condition aggravated [Not Recovered/Not Resolved]
  - Blood pressure systolic increased [Recovering/Resolving]
  - Irritability [Unknown]
  - Swelling [Not Recovered/Not Resolved]
  - Tremor [Unknown]
  - Blood pressure increased [Recovering/Resolving]
  - Keratitis [Unknown]
  - Cataract [Unknown]
  - Glaucoma [Unknown]
  - Therapy non-responder [Unknown]

NARRATIVE: CASE EVENT DATE: 2019
